FAERS Safety Report 10154773 (Version 2)
Quarter: 2014Q2

REPORT INFORMATION
  Report Type: Spontaneous
  Country: US (occurrence: None)
  Receive Date: 20140502
  Receipt Date: 20140523
  Transmission Date: 20141212
  Serious: Yes (Other)
  Sender: FDA-Public Use
  Company Number: 2014P1003472

PATIENT
  Age: 15 Year
  Sex: Female

DRUGS (1)
  1. MYORISAN [Suspect]
     Indication: ACNE CYSTIC
     Route: 048
     Dates: start: 20140331, end: 20140418

REACTIONS (3)
  - Panic attack [None]
  - Psychotic disorder [None]
  - Nervousness [None]
